FAERS Safety Report 9464956 (Version 1)
Quarter: 2013Q3

REPORT INFORMATION
  Report Type: Spontaneous
  Country: FI (occurrence: FI)
  Receive Date: 20130819
  Receipt Date: 20130819
  Transmission Date: 20140515
  Serious: Yes (Other)
  Sender: FDA-Public Use
  Company Number: FI-TEVA-424652ISR

PATIENT
  Age: 37 Year
  Sex: Male

DRUGS (7)
  1. GABAPENTIN [Suspect]
     Indication: PAIN
     Dosage: 1500 MILLIGRAM DAILY;
     Route: 048
     Dates: start: 20130121, end: 20130422
  2. BURANA [Concomitant]
     Dosage: 1600 MILLIGRAM DAILY;
     Route: 048
     Dates: end: 20130307
  3. PANADOL FORTE 1G [Concomitant]
     Dosage: 2000 MILLIGRAM DAILY;
     Route: 048
  4. PANACOD [Concomitant]
     Dosage: 500 MG PARACETAMOL W/30MG CODEINE AS NEEDED
     Route: 048
     Dates: start: 20130121, end: 20130307
  5. TRAMADIN [Concomitant]
     Dosage: 50 MILLIGRAM DAILY;
     Route: 048
     Dates: end: 20130307
  6. CYMBALTA [Concomitant]
     Route: 048
     Dates: start: 20130307
  7. NORSPAN [Concomitant]
     Route: 062
     Dates: start: 20130307

REACTIONS (8)
  - Thermohypoaesthesia [Unknown]
  - Anaesthesia [Unknown]
  - Alopecia [Unknown]
  - Vertigo [Unknown]
  - Tinnitus [Unknown]
  - Vomiting [Unknown]
  - Anhidrosis [Unknown]
  - Muscle contractions involuntary [Unknown]
